FAERS Safety Report 23815594 (Version 1)
Quarter: 2024Q2

REPORT INFORMATION
  Report Type: Spontaneous
  Country: KR (occurrence: KR)
  Receive Date: 20240503
  Receipt Date: 20240503
  Transmission Date: 20240716
  Serious: Yes (Death)
  Sender: FDA-Public Use
  Company Number: KR-MALLINCKRODT-MNK202402962

PATIENT
  Age: 4 Day
  Weight: 1 kg

DRUGS (1)
  1. NITRIC OXIDE [Suspect]
     Active Substance: NITRIC OXIDE
     Indication: Newborn persistent pulmonary hypertension
     Dosage: 20 PPM
     Route: 055
     Dates: start: 20240423, end: 20240423

REACTIONS (1)
  - Neonatal respiratory distress syndrome [Fatal]

NARRATIVE: CASE EVENT DATE: 20240423
